FAERS Safety Report 10089132 (Version 1)
Quarter: 2014Q2

REPORT INFORMATION
  Report Type: Report from Study
  Country: US (occurrence: US)
  Receive Date: 20140421
  Receipt Date: 20140421
  Transmission Date: 20141212
  Serious: Yes (Hospitalization)
  Sender: FDA-Public Use
  Company Number: PHEH2014US007568

PATIENT
  Sex: Female
  Weight: 63.49 kg

DRUGS (4)
  1. TOBI PODHALER [Suspect]
     Indication: CYSTIC FIBROSIS
     Dosage: 112 MG, BID
     Route: 055
  2. PRO-AIR [Concomitant]
     Dosage: UNK UKN, UNK
  3. PULMOZYME [Concomitant]
     Dosage: UNK UKN, UNK
  4. SODIUM CHLORIDE [Concomitant]

REACTIONS (4)
  - Cystic fibrosis [Recovered/Resolved]
  - Condition aggravated [Recovered/Resolved]
  - Haemoptysis [Recovered/Resolved]
  - Cough [Recovered/Resolved]
